FAERS Safety Report 5777068-3 (Version None)
Quarter: 2008Q2

REPORT INFORMATION
  Report Type: 
  Country: None (occurrence: None)
  Receive Date: 20080618
  Receipt Date: 20080611
  Transmission Date: 20081010
  Serious: Yes (Other)
  Sender: FDA-Public Use
  Company Number: US-ASTRAZENECA-2008UW11663

PATIENT
  Age: 58 Year
  Sex: Female
  Weight: 74.8 kg

DRUGS (6)
  1. ARIMIDEX [Suspect]
     Indication: BREAST CANCER
     Route: 048
     Dates: start: 20060101
  2. MOBIK [Concomitant]
  3. ZYRTEC [Concomitant]
  4. CALCIUM [Concomitant]
  5. VITAMINS [Concomitant]
  6. STOOL SOFTENER [Concomitant]

REACTIONS (1)
  - CHONDROPATHY [None]
